FAERS Safety Report 7226736-5 (Version None)
Quarter: 2011Q1

REPORT INFORMATION
  Report Type: 
  Country: None (occurrence: None)
  Receive Date: 20110114
  Receipt Date: 20110110
  Transmission Date: 20110831
  Serious: Yes (Death)
  Sender: FDA-Public Use
  Company Number: FR-SANOFI-AVENTIS-2011SA001434

PATIENT
  Age: 64 Year
  Sex: Female

DRUGS (3)
  1. LOVENOX [Suspect]
     Indication: PULMONARY EMBOLISM
     Route: 058
     Dates: start: 20101211, end: 20101214
  2. ESOMEPRAZOLE [Concomitant]
     Route: 048
  3. CORTISONE ACETATE [Concomitant]
     Route: 048

REACTIONS (3)
  - OESOPHAGEAL ULCER HAEMORRHAGE [None]
  - ABDOMINAL WALL HAEMATOMA [None]
  - ANAEMIA [None]
